FAERS Safety Report 8137850-4 (Version None)
Quarter: 2012Q1

REPORT INFORMATION
  Report Type: 
  Country: None (occurrence: None)
  Receive Date: 20120215
  Receipt Date: 20120209
  Transmission Date: 20120608
  Serious: Yes (Death)
  Sender: FDA-Public Use
  Company Number: DK-BRISTOL-MYERS SQUIBB COMPANY-15213267

PATIENT
  Age: 36 Year
  Sex: Male
  Weight: 67 kg

DRUGS (3)
  1. ABILIFY [Suspect]
     Indication: SCHIZOPHRENIA
     Dosage: TABS
     Route: 048
     Dates: start: 20091104
  2. ZYPREXA [Suspect]
     Indication: SCHIZOPHRENIA
     Dosage: 20MG COATED TABS
     Route: 048
     Dates: start: 20060615
  3. MIRTAZAPINE [Suspect]
     Indication: DEPRESSION
     Dosage: MIRTAZAPIN KRKA,FILM COATED TABS
     Route: 048
     Dates: start: 20091104

REACTIONS (3)
  - EOSINOPHILIC MYOCARDITIS [None]
  - ARRHYTHMIA [None]
  - TOXICITY TO VARIOUS AGENTS [None]
